FAERS Safety Report 9463564 (Version 3)
Quarter: 2013Q4

REPORT INFORMATION
  Report Type: Spontaneous
  Country: JP (occurrence: JP)
  Receive Date: 20130819
  Receipt Date: 20131016
  Transmission Date: 20140711
  Serious: Yes (Other)
  Sender: FDA-Public Use
  Company Number: JP-BRISTOL-MYERS SQUIBB COMPANY-19190644

PATIENT
  Age: 82 Year
  Sex: Female
  Weight: 58.4 kg

DRUGS (5)
  1. ELIQUIS [Suspect]
     Indication: ATRIAL FIBRILLATION
     Dosage: 26JUL13-05AUG13,31JUL13
     Route: 048
     Dates: start: 20130726
  2. BAYASPIRIN [Suspect]
     Indication: MYOCARDIAL INFARCTION
     Dosage: TABS
     Route: 048
     Dates: start: 20130727
  3. PLAVIX TABS [Suspect]
     Indication: MYOCARDIAL INFARCTION
     Route: 048
     Dates: start: 20130727
  4. AMIODARONE HCL [Concomitant]
     Indication: ATRIAL FIBRILLATION
     Dosage: TABS
     Route: 048
     Dates: start: 20130801, end: 20130805
  5. DILTIAZEM HCL [Concomitant]
     Indication: ATRIAL FIBRILLATION
     Route: 041
     Dates: start: 20130801, end: 20130809

REACTIONS (2)
  - Cerebral infarction [Recovering/Resolving]
  - Peripheral artery thrombosis [Recovering/Resolving]
